FAERS Safety Report 18477998 (Version 1)
Quarter: 2020Q4

REPORT INFORMATION
  Report Type: Spontaneous
  Country: US (occurrence: US)
  Receive Date: 20201108
  Receipt Date: 20201108
  Transmission Date: 20210114
  Serious: Yes (Hospitalization, Other)
  Sender: FDA-Public Use
  Company Number: US-AUROBINDO-AUR-APL-2020-054345

PATIENT
  Age: 58 Year
  Sex: Female

DRUGS (9)
  1. OXALIPLATIN. [Suspect]
     Active Substance: OXALIPLATIN
     Dosage: 12 CYCLES OF ADJUVANT FOLFOX
  2. FLUOROURACIL. [Concomitant]
     Active Substance: FLUOROURACIL
     Indication: COLON CANCER METASTATIC
  3. OXALIPLATIN. [Suspect]
     Active Substance: OXALIPLATIN
     Dosage: 12 CYCLES OF ADJUVANT FOLFOX-REDUCED DOSE
  4. OXALIPLATIN. [Suspect]
     Active Substance: OXALIPLATIN
  5. DEXAMETHASONE. [Concomitant]
     Active Substance: DEXAMETHASONE
     Indication: PROPHYLAXIS
     Dosage: 10 MILLIGRAM
  6. OXALIPLATIN. [Suspect]
     Active Substance: OXALIPLATIN
     Indication: COLON CANCER METASTATIC
     Dosage: REDUCED DOSE/ CYCLE 8
  7. OXALIPLATIN. [Suspect]
     Active Substance: OXALIPLATIN
  8. OXALIPLATIN. [Suspect]
     Active Substance: OXALIPLATIN
     Dosage: 12 CYCLES OF ADJUVANT FOLFOX-REDUCED DOSE
  9. FOLINIC ACID [Concomitant]
     Active Substance: LEUCOVORIN
     Indication: COLON CANCER METASTATIC

REACTIONS (4)
  - Type II hypersensitivity [Recovered/Resolved]
  - Immune thrombocytopenia [Recovered/Resolved]
  - Epistaxis [Unknown]
  - Petechiae [Unknown]
